FAERS Safety Report 23689644 (Version 1)
Quarter: 2024Q1

REPORT INFORMATION
  Report Type: Spontaneous
  Country: US (occurrence: US)
  Receive Date: 20240331
  Receipt Date: 20240331
  Transmission Date: 20240410
  Serious: No
  Sender: FDA-Public Use
  Company Number: US-TEVA-VS-3163685

PATIENT
  Age: 44 Year
  Sex: Male

DRUGS (1)
  1. UZEDY [Suspect]
     Active Substance: RISPERIDONE
     Indication: Schizophrenia
     Dosage: STRENGTH: 50/0.14 MG/ML
     Route: 065
     Dates: start: 202401

REACTIONS (6)
  - Cough [Unknown]
  - Rhinorrhoea [Unknown]
  - Restlessness [Unknown]
  - Abnormal behaviour [Unknown]
  - Somnolence [Recovered/Resolved]
  - Headache [Unknown]

NARRATIVE: CASE EVENT DATE: 20240101
